FAERS Safety Report 6387716-5 (Version None)
Quarter: 2009Q4

REPORT INFORMATION
  Report Type: 
  Country: None (occurrence: None)
  Receive Date: 20091005
  Receipt Date: 20090929
  Transmission Date: 20100525
  Serious: Yes (Death, Other)
  Sender: FDA-Public Use
  Company Number: PHEH2009US06393

PATIENT
  Sex: Female

DRUGS (1)
  1. ZOMETA [Suspect]
     Indication: HYPERCALCAEMIA
     Dosage: 4 MG, ONCE/SINGLE
     Route: 042
     Dates: start: 20081201

REACTIONS (6)
  - ANAEMIA [None]
  - DYSPHAGIA [None]
  - MASS [None]
  - NECROSIS [None]
  - NEOPLASM MALIGNANT [None]
  - OESOPHAGITIS [None]
